FAERS Safety Report 7937992-X (Version None)
Quarter: 2011Q4

REPORT INFORMATION
  Report Type: 
  Country: None (occurrence: None)
  Receive Date: 20111123
  Receipt Date: 20111116
  Transmission Date: 20120403
  Serious: Yes (Other)
  Sender: FDA-Public Use
  Company Number: GB-TEVA-309905ISR

PATIENT
  Age: 53 Year
  Sex: Female
  Weight: 77.7 kg

DRUGS (6)
  1. LANSOPRAZOLE [Concomitant]
  2. CITALOPRAM HYDROBROMIDE [Suspect]
     Indication: DEPRESSION
     Route: 048
     Dates: start: 20110601, end: 20111108
  3. CITALOPRAM HYDROBROMIDE [Suspect]
     Route: 048
     Dates: start: 20040212, end: 20110601
  4. MAXITRAM SR [Concomitant]
  5. AMITRIPTYLINE HCL [Suspect]
     Indication: PAIN
     Route: 048
     Dates: start: 20110104, end: 20111108
  6. RAMIPRIL [Concomitant]

REACTIONS (1)
  - ELECTROCARDIOGRAM QT PROLONGED [None]
